FAERS Safety Report 8052041-3 (Version None)
Quarter: 2012Q1

REPORT INFORMATION
  Report Type: 
  Country: None (occurrence: None)
  Receive Date: 20120118
  Receipt Date: 20120109
  Transmission Date: 20120608
  Serious: Yes (Hospitalization)
  Sender: FDA-Public Use
  Company Number: US-BAYER-2011-038431

PATIENT
  Age: 20 Year
  Sex: Female
  Weight: 68.027 kg

DRUGS (7)
  1. DROSPIRENONE AND ETHINYL ESTRADIOL [Suspect]
     Indication: CONTRACEPTION
     Dosage: UNK
     Dates: start: 20040101, end: 20090101
  2. YAZ [Suspect]
     Indication: CONTRACEPTION
     Dosage: UNK
     Dates: start: 20040101, end: 20090101
  3. YASMIN [Suspect]
     Indication: CONTRACEPTION
     Dosage: UNK
     Dates: start: 20040101, end: 20090101
  4. YAZ [Suspect]
     Indication: PREMENSTRUAL SYNDROME
  5. YASMIN [Suspect]
     Indication: PREMENSTRUAL SYNDROME
  6. DROSPIRENONE AND ETHINYL ESTRADIOL [Suspect]
     Indication: PREMENSTRUAL SYNDROME
  7. DARVOCET-N 50 [Concomitant]
     Dosage: UNK UNK, PRN
     Route: 048
     Dates: start: 20090101, end: 20090101

REACTIONS (11)
  - PAIN [None]
  - ANHEDONIA [None]
  - GALLBLADDER INJURY [None]
  - FEAR [None]
  - QUALITY OF LIFE DECREASED [None]
  - EMOTIONAL DISTRESS [None]
  - INJURY [None]
  - CHOLECYSTITIS ACUTE [None]
  - ANXIETY [None]
  - PANCREATITIS [None]
  - DEEP VEIN THROMBOSIS [None]
